FAERS Safety Report 16741954 (Version 3)
Quarter: 2019Q4

REPORT INFORMATION
  Report Type: Spontaneous
  Country: US (occurrence: US)
  Receive Date: 20190826
  Receipt Date: 20191105
  Transmission Date: 20200122
  Serious: No
  Sender: FDA-Public Use
  Company Number: US-TAKEDA-2019TUS049302

PATIENT
  Sex: Female

DRUGS (1)
  1. ENTYVIO [Suspect]
     Active Substance: VEDOLIZUMAB
     Indication: POUCHITIS
     Dosage: 300 MILLIGRAM
     Route: 042
     Dates: start: 201902, end: 201908

REACTIONS (8)
  - Off label use [Unknown]
  - Eosinophil count increased [Unknown]
  - Arthralgia [Unknown]
  - Red blood cell sedimentation rate increased [Unknown]
  - Chest discomfort [Recovering/Resolving]
  - Dyspnoea [Recovering/Resolving]
  - Nasopharyngitis [Unknown]
  - Cough [Recovering/Resolving]
